FAERS Safety Report 12133380 (Version 1)
Quarter: 2016Q1

REPORT INFORMATION
  Report Type: Spontaneous
  Country: CH (occurrence: CH)
  Receive Date: 20160301
  Receipt Date: 20160301
  Transmission Date: 20160526
  Serious: Yes (Hospitalization, Other)
  Sender: FDA-Public Use
  Company Number: CH-PFIZER INC-2016123205

PATIENT
  Age: 76 Year
  Sex: Female

DRUGS (12)
  1. TOREM [Suspect]
     Active Substance: TORSEMIDE
     Dosage: 5 MG (3 TIMES PER WEEK)
     Route: 048
  2. TOREM [Suspect]
     Active Substance: TORSEMIDE
     Dosage: 5 MG, DAILY
     Route: 048
     Dates: start: 20141127, end: 20141202
  3. BELOC [Concomitant]
     Active Substance: METOPROLOL TARTRATE
     Dosage: UNK
  4. SINTROM [Concomitant]
     Active Substance: ACENOCOUMAROL
     Dosage: UNK
  5. XANAX [Concomitant]
     Active Substance: ALPRAZOLAM
     Dosage: UNK
  6. ZOLDORM [Concomitant]
     Active Substance: ZOLPIDEM TARTRATE
     Dosage: UNK
  7. ASPIRIN CARDIO [Concomitant]
     Active Substance: ASPIRIN
     Dosage: 100 MG, 1X/DAY
  8. NEXIUM [Concomitant]
     Active Substance: ESOMEPRAZOLE MAGNESIUM
     Dosage: UNK
  9. TEMESTA [Concomitant]
     Active Substance: LORAZEPAM
     Dosage: UNK
  10. CORDARONE [Suspect]
     Active Substance: AMIODARONE HYDROCHLORIDE
     Indication: ATRIAL FIBRILLATION
     Dosage: 200 MG, DAILY
     Route: 048
     Dates: start: 201501, end: 20150604
  11. MICARDIS [Concomitant]
     Active Substance: TELMISARTAN
     Dosage: 80 MG, 1X/DAY
  12. TOREM [Suspect]
     Active Substance: TORSEMIDE
     Dosage: 20 MG, DAILY
     Route: 048
     Dates: start: 20141126

REACTIONS (4)
  - Cardiac failure [Unknown]
  - Hypothyroidism [Recovered/Resolved]
  - Hyponatraemia [Recovered/Resolved]
  - Fall [Unknown]

NARRATIVE: CASE EVENT DATE: 20141120
